FAERS Safety Report 5526652-0 (Version None)
Quarter: 2007Q4

REPORT INFORMATION
  Report Type: 
  Country: None (occurrence: None)
  Receive Date: 20071127
  Receipt Date: 20071115
  Transmission Date: 20080405
  Serious: Yes (Death, Hospitalization, Other)
  Sender: FDA-Public Use
  Company Number: CA-AMGEN-KDL245978

PATIENT
  Sex: Male

DRUGS (2)
  1. ENBREL [Suspect]
     Indication: RHEUMATOID ARTHRITIS
     Route: 058
     Dates: start: 20070321, end: 20070601
  2. CORTICOSTEROID NOS [Concomitant]

REACTIONS (13)
  - ABDOMINAL PAIN UPPER [None]
  - DEHYDRATION [None]
  - GASTROOESOPHAGEAL CANCER [None]
  - HYPERHIDROSIS [None]
  - LOCALISED INFECTION [None]
  - MALNUTRITION [None]
  - OBSTRUCTION GASTRIC [None]
  - PNEUMONIA ASPIRATION [None]
  - PULMONARY EMBOLISM [None]
  - RESPIRATORY ARREST [None]
  - SEPSIS [None]
  - VOMITING [None]
  - WHITE BLOOD CELL COUNT INCREASED [None]
